FAERS Safety Report 6497197-9 (Version None)
Quarter: 2009Q4

REPORT INFORMATION
  Report Type: 
  Country: None (occurrence: None)
  Receive Date: 20091215
  Receipt Date: 20090604
  Transmission Date: 20100525
  Serious: No
  Sender: FDA-Public Use
  Company Number: A0788813A

PATIENT
  Age: 40 Year
  Sex: Male

DRUGS (3)
  1. AVODART [Suspect]
     Dosage: 1CAP ALTERNATE DAYS
     Route: 048
     Dates: start: 20090516, end: 20090527
  2. MELOXICAM [Concomitant]
  3. VITAMIN [Concomitant]

REACTIONS (2)
  - ERECTILE DYSFUNCTION [None]
  - PENIS DISORDER [None]
